FAERS Safety Report 5987032-7 (Version None)
Quarter: 2008Q4

REPORT INFORMATION
  Report Type: 
  Country: None (occurrence: None)
  Receive Date: 20081209
  Receipt Date: 20081127
  Transmission Date: 20090506
  Serious: Yes (Other)
  Sender: FDA-Public Use
  Company Number: B0549089A

PATIENT
  Sex: Female

DRUGS (1)
  1. AROPAX [Suspect]
     Indication: DRUG USE FOR UNKNOWN INDICATION
     Dosage: 20MG PER DAY
     Route: 065

REACTIONS (8)
  - ABORTION INDUCED [None]
  - ANXIETY [None]
  - CHEST DISCOMFORT [None]
  - DIZZINESS [None]
  - DRUG EXPOSURE DURING PREGNANCY [None]
  - ECTOPIC PREGNANCY [None]
  - PALPITATIONS [None]
  - WITHDRAWAL SYNDROME [None]
